FAERS Safety Report 9258420 (Version 3)
Quarter: 2014Q4

REPORT INFORMATION
  Report Type: Spontaneous
  Country: US (occurrence: US)
  Receive Date: 20130426
  Receipt Date: 20141016
  Transmission Date: 20150529
  Serious: No
  Sender: FDA-Public Use
  Company Number: US-009507513-1304USA015591

PATIENT
  Sex: Female

DRUGS (2)
  1. NUVARING [Suspect]
     Active Substance: ETHINYL ESTRADIOL\ETONOGESTREL
     Indication: CONTRACEPTION
     Dosage: UNK
     Route: 067
     Dates: start: 200911
  2. NUVARING [Suspect]
     Active Substance: ETHINYL ESTRADIOL\ETONOGESTREL
     Indication: MENORRHAGIA
     Dosage: UNK
     Route: 067
     Dates: start: 201103

REACTIONS (8)
  - Endometrial hypertrophy [Unknown]
  - Coital bleeding [Unknown]
  - Thrombosis [Unknown]
  - Incorrect drug administration duration [Unknown]
  - Uterine dilation and curettage [Unknown]
  - Off label use [Unknown]
  - Endometriosis [Unknown]
  - Uterine polyp [Unknown]

NARRATIVE: CASE EVENT DATE: 20110324
